FAERS Safety Report 4605933-9 (Version None)
Quarter: 2005Q2

REPORT INFORMATION
  Report Type: 
  Country: None (occurrence: None)
  Receive Date: 20050303
  Receipt Date: 20041123
  Transmission Date: 20051028
  Serious: No
  Sender: FDA-Public Use
  Company Number: 200421066BWH

PATIENT
  Age: 67 Year
  Sex: Male
  Weight: 77.5651 kg

DRUGS (8)
  1. LEVITRA [Suspect]
     Indication: ERECTILE DYSFUNCTION
     Dosage: 10 MG, TOTAL DAILY, ORAL
     Route: 048
     Dates: start: 20041101
  2. EYE DROPS [Concomitant]
  3. GLUCOPHAGE [Concomitant]
  4. AMARYL [Concomitant]
  5. ZOCOR [Concomitant]
  6. ALTACE [Concomitant]
  7. TRICOR [Concomitant]
  8. VIAGRA [Concomitant]

REACTIONS (1)
  - DYSPEPSIA [None]
